FAERS Safety Report 21517313 (Version 1)
Quarter: 2022Q4

REPORT INFORMATION
  Report Type: Spontaneous
  Country: US (occurrence: US)
  Receive Date: 20221028
  Receipt Date: 20221028
  Transmission Date: 20230113
  Serious: Yes (Hospitalization)
  Sender: FDA-Public Use
  Company Number: US-NOVOPROD-972507

PATIENT
  Age: 61 Year
  Sex: Male

DRUGS (1)
  1. OZEMPIC [Suspect]
     Active Substance: SEMAGLUTIDE
     Indication: Type 2 diabetes mellitus
     Dosage: UNK
     Route: 058
     Dates: start: 2022

REACTIONS (4)
  - Ulcer haemorrhage [Unknown]
  - Upper gastrointestinal haemorrhage [Unknown]
  - Shock [Unknown]
  - Haematemesis [Unknown]

NARRATIVE: CASE EVENT DATE: 20221013
